FAERS Safety Report 12312685 (Version 1)
Quarter: 2016Q2

REPORT INFORMATION
  Report Type: Spontaneous
  Country: IT (occurrence: IT)
  Receive Date: 20160428
  Receipt Date: 20160428
  Transmission Date: 20160815
  Serious: Yes (Other)
  Sender: FDA-Public Use
  Company Number: IT-ACCORD-040022

PATIENT
  Age: 42 Year
  Sex: Female

DRUGS (2)
  1. QUETIAPINE. [Suspect]
     Active Substance: QUETIAPINE
     Indication: BIPOLAR DISORDER
     Dates: start: 20160110, end: 20160210
  2. LITHIUM. [Concomitant]
     Active Substance: LITHIUM
     Dates: start: 20130101

REACTIONS (4)
  - Tremor [Recovered/Resolved]
  - Salivary hypersecretion [Recovered/Resolved]
  - Drug ineffective [Recovered/Resolved]
  - Headache [Recovered/Resolved]

NARRATIVE: CASE EVENT DATE: 20160210
